FAERS Safety Report 7318793-2 (Version None)
Quarter: 2011Q1

REPORT INFORMATION
  Report Type: 
  Country: None (occurrence: None)
  Receive Date: 20110228
  Receipt Date: 20100525
  Transmission Date: 20110831
  Serious: No
  Sender: FDA-Public Use
  Company Number: A0864326A

PATIENT
  Sex: Female

DRUGS (3)
  1. IMITREX [Suspect]
     Dosage: 50MG UNKNOWN
     Route: 065
  2. FLONASE [Suspect]
     Route: 065
  3. WELLBUTRIN SR [Suspect]
     Route: 065

REACTIONS (2)
  - MULTIPLE ALLERGIES [None]
  - MALAISE [None]
